FAERS Safety Report 7286120-5 (Version None)
Quarter: 2011Q1

REPORT INFORMATION
  Report Type: 
  Country: None (occurrence: None)
  Receive Date: 20110210
  Receipt Date: 20110127
  Transmission Date: 20110831
  Serious: Yes (Hospitalization)
  Sender: FDA-Public Use
  Company Number: US-ELI_LILLY_AND_COMPANY-US201101007515

PATIENT
  Sex: Female

DRUGS (9)
  1. MULTAQ [Concomitant]
     Indication: ATRIAL FIBRILLATION
     Dosage: 400 MG, 2/D
     Dates: start: 20110105
  2. CLONAZEPAM [Concomitant]
     Dosage: UNK, AS NEEDED
  3. NEBIVOLOL [Concomitant]
  4. CYMBALTA [Suspect]
     Dosage: UNK, UNK
     Dates: start: 20101223
  5. ESTRADIOL [Concomitant]
  6. PRADAXA [Concomitant]
     Indication: ANTICOAGULANT THERAPY
     Dosage: 150 MG, 2/D
     Dates: start: 20101215
  7. FLUTICASONE PROPIONATE [Concomitant]
     Route: 045
  8. MECLIZINE [Concomitant]
  9. OXYBUTYNIN [Concomitant]

REACTIONS (2)
  - FEELING ABNORMAL [None]
  - HEPATIC FAILURE [None]
